FAERS Safety Report 18448770 (Version 1)
Quarter: 2020Q4

REPORT INFORMATION
  Report Type: Spontaneous
  Country: US (occurrence: US)
  Receive Date: 20201031
  Receipt Date: 20201031
  Transmission Date: 20210114
  Serious: Yes (Hospitalization, Other)
  Sender: FDA-Public Use
  Company Number: US-NAPPMUNDI-USA-2020-0152399

PATIENT
  Sex: Female

DRUGS (2)
  1. OXYCONTIN [Suspect]
     Active Substance: OXYCODONE HYDROCHLORIDE
     Indication: CANCER PAIN
     Dosage: 20 MG, BID
     Route: 048
     Dates: start: 2009
  2. SUBOXONE [Concomitant]
     Active Substance: BUPRENORPHINE HYDROCHLORIDE\NALOXONE HYDROCHLORIDE
     Indication: CANCER PAIN
     Dosage: UNK, DAILY
     Route: 048

REACTIONS (2)
  - Drug dependence [Unknown]
  - Overdose [Unknown]
